FAERS Safety Report 5444039-6 (Version None)
Quarter: 2007Q3

REPORT INFORMATION
  Report Type: 
  Country: None (occurrence: None)
  Receive Date: 20070831
  Receipt Date: 20070816
  Transmission Date: 20080115
  Serious: Yes (Hospitalization, Other)
  Sender: FDA-Public Use
  Company Number: A-NJ2007-17433

PATIENT
  Age: 32 Year
  Sex: Female

DRUGS (2)
  1. TRACLEER [Suspect]
     Indication: PULMONARY HYPERTENSION
     Dosage: 62.5 MG, BID, ORAL
     Route: 048
     Dates: start: 20070701, end: 20070101
  2. CYTOXAN [Suspect]
     Indication: POLYMYOSITIS
     Dosage: INTRAVENOUS
     Route: 042

REACTIONS (5)
  - DRUG EXPOSURE DURING PREGNANCY [None]
  - INTRA-UTERINE DEATH [None]
  - PREGNANCY [None]
  - SELF-MEDICATION [None]
  - SYNCOPE [None]
